FAERS Safety Report 15962326 (Version 2)
Quarter: 2019Q1

REPORT INFORMATION
  Report Type: Report from Study
  Country: DK (occurrence: DK)
  Receive Date: 20190214
  Receipt Date: 20190307
  Transmission Date: 20190417
  Serious: Yes (Other)
  Sender: FDA-Public Use
  Company Number: DK-ALLERGAN-1905137US

PATIENT
  Sex: Female
  Weight: 74.3 kg

DRUGS (12)
  1. BLINDED TIMOLOL 5MG/ML SOL (8770X) [Suspect]
     Active Substance: TIMOLOL
     Dosage: UNK
     Dates: start: 20170911, end: 20170911
  2. BLINDED BIMATOPROST 0.01 MG INS (11047X) [Suspect]
     Active Substance: BIMATOPROST
     Indication: OPEN ANGLE GLAUCOMA
     Dosage: UNK
     Dates: start: 20180108, end: 20180108
  3. BLINDED BIMATOPROST 0.015 MG INS (11048X) [Suspect]
     Active Substance: BIMATOPROST
     Dosage: UNK
     Dates: start: 20170529, end: 20170529
  4. BLINDED TIMOLOL 5MG/ML SOL (8770X) [Suspect]
     Active Substance: TIMOLOL
     Dosage: UNK
     Dates: start: 20170529, end: 20170529
  5. BLINDED BIMATOPROST 0.015 MG INS (11048X) [Suspect]
     Active Substance: BIMATOPROST
     Indication: OPEN ANGLE GLAUCOMA
     Dosage: UNK
     Dates: start: 20180108, end: 20180108
  6. BLINDED PLACEBO [Suspect]
     Active Substance: INVESTIGATIONAL PRODUCT
     Indication: OPEN ANGLE GLAUCOMA
     Dosage: UNK
     Dates: start: 20180108, end: 20180108
  7. BLINDED PLACEBO [Suspect]
     Active Substance: INVESTIGATIONAL PRODUCT
     Dosage: UNK
     Dates: start: 20170911, end: 20170911
  8. BLINDED TIMOLOL 5MG/ML SOL (8770X) [Suspect]
     Active Substance: TIMOLOL
     Indication: OPEN ANGLE GLAUCOMA
     Dosage: UNK
     Dates: start: 20180108, end: 20180108
  9. BLINDED BIMATOPROST 0.01 MG INS (11047X) [Suspect]
     Active Substance: BIMATOPROST
     Dosage: UNK
     Dates: start: 20170911, end: 20170911
  10. BLINDED BIMATOPROST 0.015 MG INS (11048X) [Suspect]
     Active Substance: BIMATOPROST
     Dosage: UNK
     Dates: start: 20170911, end: 20170911
  11. BLINDED BIMATOPROST 0.01 MG INS (11047X) [Suspect]
     Active Substance: BIMATOPROST
     Dosage: UNK
     Dates: start: 20170529, end: 20170529
  12. BLINDED PLACEBO [Suspect]
     Active Substance: INVESTIGATIONAL PRODUCT
     Dosage: UNK
     Dates: start: 20170529, end: 20170529

REACTIONS (1)
  - Corneal endothelial cell loss [Unknown]

NARRATIVE: CASE EVENT DATE: 20190111
